FAERS Safety Report 6812267-0 (Version None)
Quarter: 2010Q3

REPORT INFORMATION
  Report Type: 
  Country: None (occurrence: None)
  Receive Date: 20100701
  Receipt Date: 20100617
  Transmission Date: 20110219
  Serious: Yes (Other)
  Sender: FDA-Public Use
  Company Number: PHHY2010JP21584

PATIENT
  Sex: Male
  Weight: 44 kg

DRUGS (11)
  1. ZOMETA [Suspect]
     Indication: METASTASES TO BONE
     Dosage: 4 MG PER ADMINISTRATION
     Route: 041
     Dates: start: 20081010, end: 20090903
  2. ZETIA [Concomitant]
     Indication: HYPERCHOLESTEROLAEMIA
     Dosage: 10 MG
     Route: 048
  3. SELBEX [Concomitant]
     Indication: PROPHYLAXIS
     Dosage: 1.5 GM
     Route: 048
  4. ANPLAG [Concomitant]
     Indication: THROMBOSIS PROPHYLAXIS
     Dosage: 200 MG
     Route: 048
  5. MEVALOTIN [Concomitant]
     Indication: HYPERLIPIDAEMIA
     Dosage: 10 MG
     Route: 048
  6. FAMOGAST [Concomitant]
     Indication: PROPHYLAXIS
     Dosage: 20 MG
     Route: 048
  7. MICARDIS [Concomitant]
     Indication: HYPERTENSION
     Dosage: 40 MG
     Route: 048
  8. PLETAL [Concomitant]
     Indication: THROMBOSIS PROPHYLAXIS
     Dosage: 100 MG
     Route: 048
  9. WARFARIN SODIUM [Concomitant]
     Indication: THROMBOSIS PROPHYLAXIS
     Dosage: 1.5 MG
     Route: 048
  10. ALFAROL [Concomitant]
     Indication: OSTEOPOROSIS
     Dosage: 0.75 ?G
     Route: 048
  11. LEUPLIN [Concomitant]
     Indication: PROSTATE CANCER
     Dosage: UNK
     Route: 042
     Dates: start: 20041227

REACTIONS (6)
  - DENTAL FISTULA [None]
  - OSTEOMYELITIS [None]
  - OSTEONECROSIS OF JAW [None]
  - PAIN [None]
  - PURULENCE [None]
  - TOOTH EXTRACTION [None]
